FAERS Safety Report 7403023-3 (Version None)
Quarter: 2011Q2

REPORT INFORMATION
  Report Type: 
  Country: None (occurrence: None)
  Receive Date: 20110408
  Receipt Date: 20110330
  Transmission Date: 20111010
  Serious: Yes (Other)
  Sender: FDA-Public Use
  Company Number: US-JNJFOC-20110401911

PATIENT
  Age: 47 Year
  Sex: Female
  Weight: 83.92 kg

DRUGS (5)
  1. HYDROCHLOROTHIAZIDE [Concomitant]
     Indication: MENSTRUAL DISORDER
     Route: 065
  2. MOTRIN [Concomitant]
     Indication: HEADACHE
     Route: 065
  3. VISINE TOTALITY MULTI SYMPTOM RELIEF [Suspect]
     Route: 047
  4. VISINE TOTALITY MULTI SYMPTOM RELIEF [Suspect]
     Indication: EYE IRRITATION
     Dosage: TWO DROPS IN RIGHT EYE
     Route: 047
  5. MULTI-VITAMINS [Concomitant]
     Indication: ROUTINE HEALTH MAINTENANCE
     Route: 050

REACTIONS (5)
  - IMPAIRED WORK ABILITY [None]
  - ANAPHYLACTIC REACTION [None]
  - PRURITUS [None]
  - SKIN IRRITATION [None]
  - SWELLING [None]
